FAERS Safety Report 6628360-1 (Version None)
Quarter: 2010Q1

REPORT INFORMATION
  Report Type: 
  Country: None (occurrence: None)
  Receive Date: 20100311
  Receipt Date: 20100226
  Transmission Date: 20100710
  Serious: Yes (Hospitalization)
  Sender: FDA-Public Use
  Company Number: FI-ROCHE-689173

PATIENT
  Age: 62 Year
  Sex: Female

DRUGS (10)
  1. BONIVA [Suspect]
     Indication: OSTEOPOROSIS
     Route: 065
  2. AVANDIA [Suspect]
     Route: 048
     Dates: start: 20050901, end: 20090501
  3. DIFORMIN [Concomitant]
  4. PERSANTINE [Concomitant]
     Dosage: PERSANTIN DEPOT
  5. ASPIRIN [Concomitant]
  6. PRAMIPEXOLE DIHYDROCHLORIDE [Concomitant]
  7. SIMVASTATIN [Concomitant]
  8. LOSARTIC [Concomitant]
     Dosage: LOSATRIC
  9. ACLASTA [Concomitant]
     Dosage: RECEIVED IN SUMMER
  10. IDEOS [Concomitant]

REACTIONS (6)
  - FALL [None]
  - FRACTURED SACRUM [None]
  - GAIT DISTURBANCE [None]
  - OSTEOPOROTIC FRACTURE [None]
  - PAIN [None]
  - PELVIC FRACTURE [None]
